FAERS Safety Report 8301822-7 (Version None)
Quarter: 2012Q2

REPORT INFORMATION
  Report Type: 
  Country: None (occurrence: None)
  Receive Date: 20120417
  Receipt Date: 20120403
  Transmission Date: 20120825
  Serious: Yes (Hospitalization)
  Sender: FDA-Public Use
  Company Number: FK201201046

PATIENT
  Age: 35 Year
  Sex: Female

DRUGS (2)
  1. KENGSENGMYCIN (ANTIBIOTICS) (ANTIBIOTICS) [Suspect]
     Indication: CHORIOCARCINOMA
     Dosage: 6 UG/KG INTRAVENOUS (NOT OTHERWISE SPECIFIED)
     Route: 042
  2. FLUOROURACIL [Suspect]
     Indication: CHORIOCARCINOMA
     Dosage: 24 MG/KG, INTRAVENOUS (NOT OTHERWISE SPECIFIED)
     Route: 042

REACTIONS (4)
  - UTERINE PERFORATION [None]
  - VAGINAL HAEMORRHAGE [None]
  - UTERINE ENLARGEMENT [None]
  - ABDOMINAL PAIN LOWER [None]
